FAERS Safety Report 7950771-2 (Version None)
Quarter: 2011Q4

REPORT INFORMATION
  Report Type: 
  Country: None (occurrence: None)
  Receive Date: 20111201
  Receipt Date: 20111121
  Transmission Date: 20120403
  Serious: Yes (Hospitalization, Other)
  Sender: FDA-Public Use
  Company Number: US-BAYER-2011-005220

PATIENT
  Age: 16 Year
  Sex: Female
  Weight: 82 kg

DRUGS (5)
  1. YAZ [Suspect]
     Indication: MENORRHAGIA
  2. YAZ [Suspect]
     Indication: ACNE
     Dosage: UNK
     Route: 048
     Dates: start: 20090101, end: 20100101
  3. YAZ [Suspect]
     Indication: HYPERANDROGENISM
  4. YAZ [Suspect]
     Indication: POLYCYSTIC OVARIES
  5. PROZAC [Concomitant]

REACTIONS (6)
  - ABDOMINAL PAIN [None]
  - DEPRESSION SUICIDAL [None]
  - NAUSEA [None]
  - ANXIETY [None]
  - CHOLECYSTITIS CHRONIC [None]
  - DIARRHOEA [None]
